FAERS Safety Report 17314449 (Version 1)
Quarter: 2020Q1

REPORT INFORMATION
  Report Type: Spontaneous
  Country: US (occurrence: US)
  Receive Date: 20200124
  Receipt Date: 20200124
  Transmission Date: 20200409
  Serious: No
  Sender: FDA-Public Use
  Company Number: US-PCCINC-2018-PEL-003630

PATIENT

DRUGS (2)
  1. GABLOFEN [Suspect]
     Active Substance: BACLOFEN
     Indication: PRODUCT USED FOR UNKNOWN INDICATION
     Dosage: 580 MICROGRAM, QD (FLEX DOSE)
     Route: 037
  2. GABLOFEN [Suspect]
     Active Substance: BACLOFEN
     Dosage: 500MCG/ML
     Route: 037

REACTIONS (2)
  - Infection [Recovered/Resolved]
  - Abdominal wall wound [Recovered/Resolved]

NARRATIVE: CASE EVENT DATE: 20181127
